FAERS Safety Report 5191337-X (Version None)
Quarter: 2006Q4

REPORT INFORMATION
  Report Type: 
  Country: None (occurrence: None)
  Receive Date: 20061226
  Receipt Date: 20060208
  Transmission Date: 20070319
  Serious: Yes (Other)
  Sender: FDA-Public Use
  Company Number: US-ROCHE-435886

PATIENT
  Age: 18 Year
  Sex: Female
  Weight: 54.4 kg

DRUGS (5)
  1. ACCUTANE [Suspect]
     Route: 048
     Dates: start: 20041015, end: 20050615
  2. ACCUTANE [Suspect]
     Route: 048
     Dates: start: 20060315
  3. ZYRTEC [Concomitant]
     Dosage: DOSAGE REGIMEN REPORTED AS PRN.
     Route: 048
  4. NASACORT [Concomitant]
     Dosage: ROUTE REPORTED AS NASAL. DOSAGE REGIMEN REPORTED AS PRN.
     Route: 045
  5. AYGESTIN [Concomitant]
     Dosage: DOSAGE REGIMEN REPORTED AS DAILY.
     Route: 048

REACTIONS (1)
  - NEURILEMMOMA [None]
